FAERS Safety Report 4552956-4 (Version None)
Quarter: 2005Q1

REPORT INFORMATION
  Report Type: 
  Country: None (occurrence: None)
  Receive Date: 20050113
  Receipt Date: 20041230
  Transmission Date: 20050727
  Serious: Yes (Life-Threatening, Hospitalization)
  Sender: FDA-Public Use
  Company Number: 2004UW17246

PATIENT
  Age: 48 Year
  Sex: Female
  Weight: 78 kg

DRUGS (4)
  1. FASLODEX [Suspect]
     Indication: BREAST CANCER
     Dates: start: 20040202, end: 20040701
  2. FASLODEX [Suspect]
     Indication: BREAST CANCER
     Dates: start: 20041202
  3. HERCEPTIN [Concomitant]
  4. ZOMETA [Concomitant]

REACTIONS (4)
  - COAGULOPATHY [None]
  - COMA [None]
  - GASTRIC ULCER HAEMORRHAGE [None]
  - PLATELET COUNT DECREASED [None]
